FAERS Safety Report 9891045 (Version 2)
Quarter: 2014Q1

REPORT INFORMATION
  Report Type: Spontaneous
  Country: US (occurrence: US)
  Receive Date: 20140212
  Receipt Date: 20140309
  Transmission Date: 20141002
  Serious: No
  Sender: FDA-Public Use
  Company Number: US-009507513-1402USA004800

PATIENT
  Age: 73 Year
  Sex: Male

DRUGS (1)
  1. JANUVIA [Suspect]
     Dosage: 50 MG, QD
     Route: 048
     Dates: start: 20140128, end: 2014

REACTIONS (2)
  - Generalised erythema [Recovering/Resolving]
  - Swollen tongue [Recovering/Resolving]
